FAERS Safety Report 10393582 (Version 1)
Quarter: 2014Q3

REPORT INFORMATION
  Report Type: Spontaneous
  Country: BE (occurrence: BE)
  Receive Date: 20140819
  Receipt Date: 20140819
  Transmission Date: 20150326
  Serious: Yes (Other)
  Sender: FDA-Public Use
  Company Number: BE-BRISTOL-MYERS SQUIBB COMPANY-21303433

PATIENT
  Sex: Male

DRUGS (1)
  1. MITOMYCIN C [Suspect]
     Active Substance: MITOMYCIN
     Indication: URINARY BLADDER POLYP
     Dosage: 1 DF: 2X20 MG DISSOLVED IN 50 ML NACL:INJECTION
     Route: 065
     Dates: start: 20131115, end: 20131115

REACTIONS (2)
  - Dermatitis allergic [Recovered/Resolved]
  - Face oedema [Recovered/Resolved]

NARRATIVE: CASE EVENT DATE: 20131115
